FAERS Safety Report 7138998-3 (Version None)
Quarter: 2010Q4

REPORT INFORMATION
  Report Type: 
  Country: None (occurrence: None)
  Receive Date: 20101206
  Receipt Date: 20101124
  Transmission Date: 20110411
  Serious: Yes (Hospitalization)
  Sender: FDA-Public Use
  Company Number: A0891841A

PATIENT
  Age: 53 Year
  Sex: Female

DRUGS (4)
  1. SELZENTRY [Suspect]
     Indication: HIV INFECTION
     Dosage: 150MG TWICE PER DAY
     Route: 065
     Dates: start: 20101005, end: 20101109
  2. RALTEGRAVIR [Suspect]
     Dosage: 400MG TWICE PER DAY
     Route: 065
     Dates: start: 20101005, end: 20101109
  3. ATAZANAVIR [Suspect]
     Dosage: 300MG PER DAY
     Route: 065
     Dates: start: 20101005, end: 20101109
  4. RITONAVIR [Suspect]
     Dosage: 100MG PER DAY
     Route: 065
     Dates: start: 20101005, end: 20101109

REACTIONS (9)
  - BACK PAIN [None]
  - DRUG RASH WITH EOSINOPHILIA AND SYSTEMIC SYMPTOMS [None]
  - EOSINOPHILIA [None]
  - LIVER FUNCTION TEST ABNORMAL [None]
  - PAIN IN EXTREMITY [None]
  - RASH [None]
  - RASH MACULO-PAPULAR [None]
  - RASH MORBILLIFORM [None]
  - RASH PRURITIC [None]
